FAERS Safety Report 7166174-7 (Version None)
Quarter: 2010Q4

REPORT INFORMATION
  Report Type: 
  Country: None (occurrence: None)
  Receive Date: 20101202
  Receipt Date: 20101115
  Transmission Date: 20110411
  Serious: Yes (Hospitalization, Other)
  Sender: FDA-Public Use
  Company Number: 2010004750

PATIENT
  Age: 54 Year
  Sex: Male

DRUGS (6)
  1. ERLOTINIB/PLACEBO (ERLOTINIB) (TABLET) (ERLOTINIB) [Suspect]
     Indication: HEPATIC NEOPLASM MALIGNANT
     Dosage: (150 MG,QD),ORAL
     Route: 048
     Dates: start: 20101004, end: 20101019
  2. SORAFENIB [Suspect]
     Indication: HEPATIC NEOPLASM MALIGNANT
     Dosage: (800 MG,QD),ORAL
     Route: 048
     Dates: start: 20101004, end: 20101019
  3. NADOLOL [Concomitant]
  4. LAMIVUDINE (LAMIVUDINE) [Concomitant]
  5. ADEFOVIR (ADEFOVIR) [Concomitant]
  6. CORTISIP [Concomitant]

REACTIONS (10)
  - ASCITES [None]
  - BLOOD ALBUMIN ABNORMAL [None]
  - BLOOD CREATININE ABNORMAL [None]
  - BLOOD UREA ABNORMAL [None]
  - HAEMATOCRIT ABNORMAL [None]
  - HAEMOGLOBIN DECREASED [None]
  - OESOPHAGEAL ULCER [None]
  - OESOPHAGEAL VARICES HAEMORRHAGE [None]
  - PORTAL HYPERTENSIVE GASTROPATHY [None]
  - RED CELL DISTRIBUTION WIDTH ABNORMAL [None]
